FAERS Safety Report 24268636 (Version 1)
Quarter: 2024Q3

REPORT INFORMATION
  Report Type: Spontaneous
  Country: IT (occurrence: IT)
  Receive Date: 20240830
  Receipt Date: 20240830
  Transmission Date: 20241017
  Serious: Yes (Other)
  Sender: SANDOZ
  Company Number: IT-AMGEN-ITASP2024162343

PATIENT
  Sex: Female

DRUGS (1)
  1. ADALIMUMAB [Suspect]
     Active Substance: ADALIMUMAB
     Indication: Rheumatic disorder
     Dosage: UNK
     Route: 065

REACTIONS (11)
  - Crohn^s disease [Unknown]
  - Premature delivery [Unknown]
  - Remission not achieved [Unknown]
  - Gestational diabetes [Unknown]
  - Placenta praevia [Unknown]
  - Ultrasound Doppler abnormal [Unknown]
  - Arthritis [Unknown]
  - Condition aggravated [Unknown]
  - Maternal exposure during pregnancy [Unknown]
  - Therapy interrupted [Unknown]
  - Lactation disorder [Unknown]
